FAERS Safety Report 8304084-X (Version None)
Quarter: 2012Q2

REPORT INFORMATION
  Report Type: 
  Country: None (occurrence: None)
  Receive Date: 20120418
  Receipt Date: 20111130
  Transmission Date: 20120825
  Serious: No
  Sender: FDA-Public Use
  Company Number: AEUSA201100326

PATIENT
  Age: 65 Year
  Sex: Female
  Weight: 107.9561 kg

DRUGS (16)
  1. ALBUTEROL [Concomitant]
  2. METFORMIN HCL [Concomitant]
  3. NASONEX [Concomitant]
  4. XANAX [Concomitant]
  5. IMDUR [Concomitant]
  6. HUMALOG [Concomitant]
  7. LANTUS [Concomitant]
  8. PROLASTIN-C [Suspect]
     Indication: ALPHA-1 ANTI-TRYPSIN DEFICIENCY
     Dosage: UNKNOWN,QW, IV
     Route: 042
     Dates: start: 20111118
  9. COZAAR [Concomitant]
  10. FORADIL [Concomitant]
  11. PRILOSEC [Concomitant]
  12. MONTELUKAST SODIUM [Concomitant]
  13. PULMICORT [Concomitant]
  14. SPIRIVA [Concomitant]
  15. PERCOCET [Concomitant]
  16. PREDNISONE [Concomitant]

REACTIONS (3)
  - HYPOAESTHESIA [None]
  - CHEST PAIN [None]
  - PAIN IN EXTREMITY [None]
